FAERS Safety Report 10077242 (Version 2)
Quarter: 2014Q2

REPORT INFORMATION
  Report Type: Spontaneous
  Country: US (occurrence: US)
  Receive Date: 20140414
  Receipt Date: 20140414
  Transmission Date: 20141212
  Serious: No
  Sender: FDA-Public Use
  Company Number: US-BANPHARM-20131096

PATIENT
  Age: 64 Year
  Sex: Female
  Weight: 57.61 kg

DRUGS (1)
  1. ALEVE LIQUID GELS 220 MG [Suspect]
     Dosage: 1 DF, PRN,
     Route: 048
     Dates: start: 1993, end: 20130319

REACTIONS (5)
  - Eye swelling [Recovered/Resolved]
  - Eye pruritus [Recovered/Resolved]
  - Dyspepsia [Unknown]
  - Eye swelling [Recovered/Resolved]
  - Expired product administered [Unknown]
